FAERS Safety Report 7417037-0 (Version None)
Quarter: 2011Q2

REPORT INFORMATION
  Report Type: 
  Country: None (occurrence: None)
  Receive Date: 20110412
  Receipt Date: 20110412
  Transmission Date: 20111010
  Serious: Yes (Other)
  Sender: FDA-Public Use
  Company Number: None

PATIENT
  Age: 79 Year
  Sex: Male

DRUGS (9)
  1. VITAMIN D [Suspect]
     Indication: VITAMIN D DEFICIENCY
     Dosage: 50,000 IU WEEKLY PO   1 PILL
     Route: 048
     Dates: start: 20110317
  2. METFORMIN [Concomitant]
  3. HYDROCHLOROTHIAZIDE [Concomitant]
  4. LOMATIL [Concomitant]
  5. NAPROXEN (ALEVE) [Concomitant]
  6. SIMVASTATIN [Concomitant]
  7. ACETAMINOPHEN [Concomitant]
  8. GLYBURIDE [Concomitant]
  9. ASACOL [Concomitant]

REACTIONS (1)
  - SYNCOPE [None]
